FAERS Safety Report 20968670 (Version 1)
Quarter: 2022Q2

REPORT INFORMATION
  Report Type: Spontaneous
  Country: US (occurrence: None)
  Receive Date: 20220616
  Receipt Date: 20220616
  Transmission Date: 20220720
  Serious: Yes (Life-Threatening)
  Sender: FDA-Public Use
  Company Number: None

PATIENT
  Age: 1 Year
  Sex: Male
  Weight: 9.25 kg

DRUGS (1)
  1. ECULIZUMAB [Suspect]
     Active Substance: ECULIZUMAB
     Indication: Thrombotic microangiopathy
     Dates: start: 20220601, end: 20220615

REACTIONS (3)
  - Respiratory depression [None]
  - Hypervolaemia [None]
  - Hepatic vein occlusion [None]

NARRATIVE: CASE EVENT DATE: 20220616
